FAERS Safety Report 15481693 (Version 1)
Quarter: 2018Q4

REPORT INFORMATION
  Report Type: Spontaneous
  Country: JP (occurrence: JP)
  Receive Date: 20181010
  Receipt Date: 20181010
  Transmission Date: 20190205
  Serious: Yes (Other)
  Sender: FDA-Public Use
  Company Number: JP-LUPIN PHARMACEUTICALS INC.-2018-06961

PATIENT
  Age: 86 Year
  Sex: Female

DRUGS (1)
  1. METRONIDAZOLE. [Suspect]
     Active Substance: METRONIDAZOLE
     Indication: PARVIMONAS MICRA INFECTION
     Dosage: 1500 MG, QD
     Route: 048

REACTIONS (2)
  - Product use in unapproved indication [None]
  - Toxic encephalopathy [Recovered/Resolved]
